FAERS Safety Report 11543470 (Version 1)
Quarter: 2015Q3

REPORT INFORMATION
  Report Type: Spontaneous
  Country: US (occurrence: US)
  Receive Date: 20150923
  Receipt Date: 20150923
  Transmission Date: 20151125
  Serious: Yes (Hospitalization)
  Sender: FDA-Public Use
  Company Number: US-ASTRAZENECA-2015SE90208

PATIENT
  Age: 20226 Day
  Sex: Male
  Weight: 74.8 kg

DRUGS (25)
  1. BUDESONIDE. [Concomitant]
     Active Substance: BUDESONIDE
     Indication: EMPHYSEMA
     Dosage: 0.5/2ML, UNKNOWN
     Route: 055
     Dates: start: 2011
  2. RANITIDINE [Concomitant]
     Active Substance: RANITIDINE\RANITIDINE HYDROCHLORIDE
     Indication: ABDOMINAL DISCOMFORT
     Dates: start: 2013
  3. DALIRESP [Suspect]
     Active Substance: ROFLUMILAST
     Indication: CHRONIC OBSTRUCTIVE PULMONARY DISEASE
     Route: 048
  4. FOLIC ACID. [Concomitant]
     Active Substance: FOLIC ACID
     Indication: ANAEMIA
     Route: 048
  5. BUDESONIDE. [Concomitant]
     Active Substance: BUDESONIDE
     Indication: CHRONIC OBSTRUCTIVE PULMONARY DISEASE
     Dosage: 0.5/2ML, UNKNOWN
     Route: 055
     Dates: start: 2011
  6. LIVALO [Concomitant]
     Active Substance: PITAVASTATIN CALCIUM
     Indication: BLOOD CHOLESTEROL INCREASED
     Dates: start: 2014
  7. VITAMIN C [Concomitant]
     Active Substance: ASCORBIC ACID
  8. MUCINEX [Concomitant]
     Active Substance: GUAIFENESIN
     Indication: CHRONIC OBSTRUCTIVE PULMONARY DISEASE
     Dosage: 1200 MG, TWO TIMES A DAY GENERIC STORE BRAND
     Dates: start: 2011
  9. FERROUS SULFATE [Concomitant]
     Active Substance: FERROUS SULFATE\FERROUS SULFATE, DRIED
     Indication: IMMUNE SYSTEM DISORDER
  10. CLOPIDOGREL [Concomitant]
     Active Substance: CLOPIDOGREL BISULFATE
     Indication: ANTICOAGULANT THERAPY
     Dosage: 75 MG DAILY, GENERIC FOR PLAVIX
     Dates: start: 20081029
  11. MUCINEX [Concomitant]
     Active Substance: GUAIFENESIN
     Indication: EMPHYSEMA
     Dosage: 1200 MG, TWO TIMES A DAY GENERIC STORE BRAND
     Dates: start: 2011
  12. DALIRESP [Suspect]
     Active Substance: ROFLUMILAST
     Indication: DYSPNOEA
     Route: 048
  13. PERFOROMIST [Concomitant]
     Active Substance: FORMOTEROL FUMARATE DIHYDRATE
     Indication: EMPHYSEMA
     Dosage: 20 MCG IN 2 ML VIAL
     Route: 055
     Dates: start: 2011
  14. VITAMIN B12 [Concomitant]
     Active Substance: CYANOCOBALAMIN
     Indication: SUPPLEMENTATION THERAPY
     Dates: start: 2014
  15. TUDORZA PRESSAIR [Suspect]
     Active Substance: ACLIDINIUM BROMIDE
     Indication: EMPHYSEMA
     Route: 055
  16. PERFOROMIST [Concomitant]
     Active Substance: FORMOTEROL FUMARATE DIHYDRATE
     Indication: CHRONIC OBSTRUCTIVE PULMONARY DISEASE
     Dosage: 20 MCG IN 2 ML VIAL
     Route: 055
     Dates: start: 2011
  17. LOPERAMIDE [Concomitant]
     Active Substance: LOPERAMIDE
     Indication: DIARRHOEA
     Dates: start: 2013
  18. CITALOPRAM HYDROBROMIDE. [Concomitant]
     Active Substance: CITALOPRAM HYDROBROMIDE
     Indication: IRRITABLE BOWEL SYNDROME
     Dosage: 20 MG DAILY GENERIC FOR CELEXA
     Dates: start: 201409
  19. FERROUS SULFATE [Concomitant]
     Active Substance: FERROUS SULFATE\FERROUS SULFATE, DRIED
     Indication: ANAEMIA
  20. VITAMIN B12 [Concomitant]
     Active Substance: CYANOCOBALAMIN
     Indication: ASTHENIA
     Dates: start: 2014
  21. OCTAGAM IMMUNE GLOBULIN (HUMAN) [Concomitant]
     Active Substance: HUMAN IMMUNOGLOBULIN G
     Indication: IMMUNE SYSTEM DISORDER
     Dosage: 10 GRAMS IN 200 ML, EVERY FOUR WEEKS
     Dates: start: 201101
  22. TUDORZA PRESSAIR [Suspect]
     Active Substance: ACLIDINIUM BROMIDE
     Indication: CHRONIC OBSTRUCTIVE PULMONARY DISEASE
     Route: 055
  23. METOPROLOL SUCCINATE. [Suspect]
     Active Substance: METOPROLOL SUCCINATE
     Indication: CARDIAC DISORDER
     Route: 048
     Dates: start: 20040312
  24. LIVALO [Concomitant]
     Active Substance: PITAVASTATIN CALCIUM
     Indication: CARDIAC DISORDER
     Dates: start: 2014
  25. VITAMIN D3 [Concomitant]
     Active Substance: CHOLECALCIFEROL
     Dates: start: 2014

REACTIONS (6)
  - Lung disorder [Unknown]
  - Hypersensitivity [Unknown]
  - Product quality issue [Unknown]
  - Malaise [Unknown]
  - Myocardial infarction [Unknown]
  - Diarrhoea [Unknown]

NARRATIVE: CASE EVENT DATE: 20081029
